FAERS Safety Report 14274468 (Version 2)
Quarter: 2018Q1

REPORT INFORMATION
  Report Type: Spontaneous
  Country: FR (occurrence: FR)
  Receive Date: 20171211
  Receipt Date: 20180111
  Transmission Date: 20180508
  Serious: Yes (Other)
  Sender: FDA-Public Use
  Company Number: FR-OTSUKA-2016_010078

PATIENT
  Age: 8 Year
  Sex: Male

DRUGS (2)
  1. ABILIFY [Suspect]
     Active Substance: ARIPIPRAZOLE
     Dosage: 5 MG, QD
     Route: 065
     Dates: start: 201412
  2. ABILIFY [Suspect]
     Active Substance: ARIPIPRAZOLE
     Indication: TOURETTE^S DISORDER
     Dosage: 2.5 MG, UNK
     Route: 065
     Dates: start: 201407, end: 201412

REACTIONS (6)
  - Faecaloma [Recovered/Resolved]
  - Urinary incontinence [Recovered/Resolved]
  - Constipation [Recovered/Resolved]
  - Anal incontinence [Recovered/Resolved]
  - Off label use [Unknown]
  - Priapism [Recovered/Resolved]
